FAERS Safety Report 5423691-5 (Version None)
Quarter: 2007Q3

REPORT INFORMATION
  Report Type: 
  Country: None (occurrence: None)
  Receive Date: 20070823
  Receipt Date: 20070815
  Transmission Date: 20080115
  Serious: Yes (Hospitalization)
  Sender: FDA-Public Use
  Company Number: B0484161A

PATIENT
  Sex: Female

DRUGS (1)
  1. LANOXIN [Suspect]
     Indication: ATRIAL FIBRILLATION
     Dosage: 125MCG PER DAY
     Route: 065

REACTIONS (2)
  - NECK MASS [None]
  - PHARYNGEAL OEDEMA [None]
